FAERS Safety Report 17194869 (Version 1)
Quarter: 2019Q4

REPORT INFORMATION
  Report Type: Spontaneous
  Country: US (occurrence: US)
  Receive Date: 20191224
  Receipt Date: 20191224
  Transmission Date: 20200122
  Serious: Yes (Other)
  Sender: FDA-Public Use
  Company Number: US-GLAXOSMITHKLINE-US2019TSO232170

PATIENT
  Age: 62 Year
  Sex: Female

DRUGS (1)
  1. NIRAPARIB [Suspect]
     Active Substance: NIRAPARIB
     Indication: OVARIAN CANCER
     Dosage: 200 MG, QD
     Route: 048
     Dates: start: 20191206

REACTIONS (9)
  - Dry mouth [Unknown]
  - Fatigue [Unknown]
  - Pelvic pain [Unknown]
  - Neuropathy peripheral [Unknown]
  - Stomatitis [Unknown]
  - Blood pressure increased [Unknown]
  - Heart rate increased [Unknown]
  - Oral herpes [Unknown]
  - Candida infection [Unknown]

NARRATIVE: CASE EVENT DATE: 201912
